FAERS Safety Report 16338431 (Version 1)
Quarter: 2019Q2

REPORT INFORMATION
  Report Type: Spontaneous
  Country: CA (occurrence: CA)
  Receive Date: 20190521
  Receipt Date: 20190521
  Transmission Date: 20190711
  Serious: Yes (Death)
  Sender: FDA-Public Use
  Company Number: CA-TEVA-2019-CA-1051638

PATIENT
  Age: 76 Year
  Sex: Female

DRUGS (1)
  1. LOVASTATIN. [Suspect]
     Active Substance: LOVASTATIN
     Indication: BLOOD CHOLESTEROL INCREASED

REACTIONS (9)
  - Cardiac failure congestive [Fatal]
  - Confusional state [Fatal]
  - Hallucination [Fatal]
  - Rheumatoid arthritis [Fatal]
  - Parkinson^s disease [Fatal]
  - Chronic kidney disease [Fatal]
  - Rhabdomyolysis [Fatal]
  - Cognitive disorder [Fatal]
  - Dementia [Fatal]
